FAERS Safety Report 15483908 (Version 8)
Quarter: 2022Q2

REPORT INFORMATION
  Report Type: Spontaneous
  Country: US (occurrence: US)
  Receive Date: 20181010
  Receipt Date: 20220427
  Transmission Date: 20220721
  Serious: No
  Sender: FDA-Public Use
  Company Number: US-PFIZER INC-2018407146

PATIENT
  Age: 74 Year
  Sex: Female
  Weight: 46.27 kg

DRUGS (3)
  1. SKELAXIN [Suspect]
     Active Substance: METAXALONE
     Indication: Back pain
     Dosage: 800 MG, 1X/DAY (800 MG 1 A DAY FOR 90 DAYS)
     Route: 048
  2. SKELAXIN [Suspect]
     Active Substance: METAXALONE
     Indication: Muscle spasms
     Dosage: 800 MG, AS NEEDED (ONE PO [ORALLY] Q [EVERY] 6HRS PRN [AS NEEDED])
     Route: 048
  3. SKELAXIN [Suspect]
     Active Substance: METAXALONE
     Indication: Muscle spasms
     Dosage: 800 MG, 4X/DAY (1 PO Q 6 HOURS)
     Route: 048

REACTIONS (6)
  - Malaise [Unknown]
  - Influenza [Not Recovered/Not Resolved]
  - Chills [Unknown]
  - Memory impairment [Unknown]
  - Off label use [Unknown]
  - Product use issue [Unknown]
